FAERS Safety Report 4534568-1 (Version None)
Quarter: 2004Q4

REPORT INFORMATION
  Report Type: 
  Country: None (occurrence: None)
  Receive Date: 20041222
  Receipt Date: 20041216
  Transmission Date: 20050328
  Serious: Yes (Hospitalization)
  Sender: FDA-Public Use
  Company Number: US-BRISTOL-MYERS SQUIBB COMPANY-12797577

PATIENT
  Age: 5 Decade
  Sex: Female

DRUGS (5)
  1. TAXOL [Suspect]
     Indication: BREAST CANCER
     Route: 042
  2. DECADRON [Concomitant]
     Indication: PREMEDICATION
     Route: 042
  3. ZANTAC [Concomitant]
     Indication: PREMEDICATION
     Route: 042
  4. BENADRYL [Concomitant]
     Indication: PREMEDICATION
     Route: 042
  5. ANZEMET [Concomitant]
     Indication: PREMEDICATION
     Route: 042

REACTIONS (2)
  - ADVERSE DRUG REACTION [None]
  - DYSPNOEA [None]
